FAERS Safety Report 21791137 (Version 1)
Quarter: 2022Q4

REPORT INFORMATION
  Report Type: Spontaneous
  Country: US (occurrence: US)
  Receive Date: 20221228
  Receipt Date: 20221228
  Transmission Date: 20230113
  Serious: No
  Sender: FDA-Public Use
  Company Number: US-CLOVIS ONCOLOGY-CLO-2022-000994

PATIENT
  Age: 86 Year
  Sex: Female

DRUGS (1)
  1. RUBRACA [Suspect]
     Active Substance: RUCAPARIB CAMSYLATE
     Indication: Ovarian cancer
     Dosage: 200 MILLIGRAM, BID
     Route: 048
     Dates: start: 20220425, end: 20220826

REACTIONS (21)
  - Gait disturbance [Unknown]
  - Hypotonia [Recovering/Resolving]
  - Pain in jaw [Unknown]
  - Joint swelling [Unknown]
  - Pain in extremity [Unknown]
  - Dry skin [Unknown]
  - Muscle spasms [Recovering/Resolving]
  - Balance disorder [Not Recovered/Not Resolved]
  - Contusion [Unknown]
  - Eye irritation [Unknown]
  - Vision blurred [Unknown]
  - Hypoacusis [Unknown]
  - Skin discolouration [Recovering/Resolving]
  - Trigger finger [Unknown]
  - Fall [Unknown]
  - Sleep deficit [Unknown]
  - Memory impairment [Unknown]
  - Rash [Not Recovered/Not Resolved]
  - Rash erythematous [Recovered/Resolved]
  - Dizziness [Unknown]
  - Fatigue [Not Recovered/Not Resolved]

NARRATIVE: CASE EVENT DATE: 20220501
